FAERS Safety Report 5838687-9 (Version None)
Quarter: 2008Q3

REPORT INFORMATION
  Report Type: 
  Country: None (occurrence: None)
  Receive Date: 20080808
  Receipt Date: 20080806
  Transmission Date: 20090109
  Serious: Yes (Hospitalization)
  Sender: FDA-Public Use
  Company Number: A0741389A

PATIENT
  Age: 48 Year
  Sex: Female

DRUGS (2)
  1. TYKERB [Suspect]
     Indication: BREAST CANCER
     Dosage: 1250MG PER DAY
     Route: 048
     Dates: start: 20070401, end: 20080115
  2. XELODA [Concomitant]

REACTIONS (8)
  - ABDOMINAL PAIN UPPER [None]
  - CHROMATURIA [None]
  - DYSPNOEA [None]
  - FAECES PALE [None]
  - HEPATIC MASS [None]
  - MALAISE [None]
  - OCULAR ICTERUS [None]
  - YELLOW SKIN [None]
